FAERS Safety Report 4348795-X (Version None)
Quarter: 2004Q2

REPORT INFORMATION
  Report Type: 
  Country: None (occurrence: None)
  Receive Date: 20040423
  Receipt Date: 20040414
  Transmission Date: 20050107
  Serious: Yes (Hospitalization)
  Sender: FDA-Public Use
  Company Number: 2004025663

PATIENT
  Sex: Male

DRUGS (7)
  1. LIPITOR [Suspect]
     Indication: BLOOD CHOLESTEROL INCREASED
     Dosage: 80 MG (DAILY), ORAL
     Route: 048
  2. CLOPIDOGREL BISULFATE [Concomitant]
  3. FENOFIBRATE [Concomitant]
  4. METOPROLOL TARTRATE [Concomitant]
  5. ASPIRIN [Concomitant]
  6. FOLIC ACID [Concomitant]
  7. NITROGLYCERIN [Concomitant]

REACTIONS (2)
  - ANGINA UNSTABLE [None]
  - NEUROPATHY [None]
